FAERS Safety Report 9611581 (Version 3)
Quarter: 2014Q4

REPORT INFORMATION
  Report Type: Report from Study
  Country: BR (occurrence: BR)
  Receive Date: 20131010
  Receipt Date: 20141112
  Transmission Date: 20150529
  Serious: Yes (Other)
  Sender: FDA-Public Use
  Company Number: PHHY2013BR023104

PATIENT
  Age: 60 Year
  Sex: Female
  Weight: 49 kg

DRUGS (10)
  1. NOVOLIN [Concomitant]
     Active Substance: INSULIN HUMAN
     Indication: DIABETES MELLITUS
     Dosage: 20 U, QD
     Route: 058
  2. ACETYLSALICYLIC ACID [Concomitant]
     Active Substance: ASPIRIN
     Dosage: UNK UKN, UNK
     Route: 065
  3. METFORMIN [Concomitant]
     Active Substance: METFORMIN HYDROCHLORIDE
     Indication: DIABETES MELLITUS
     Dosage: 2 DF, QD
     Route: 048
  4. CAPTOPRIL. [Concomitant]
     Active Substance: CAPTOPRIL
     Indication: HYPERTENSION
     Dosage: 2 DF, QD
     Route: 048
  5. CAPTOPRIL. [Concomitant]
     Active Substance: CAPTOPRIL
     Dosage: 3 DF, QD
     Route: 048
     Dates: end: 20130926
  6. PURAN [Concomitant]
     Active Substance: LEVOTHYROXINE SODIUM
     Dosage: 80 MG, UNK
  7. HYDROCHLOROTHIAZIDE. [Concomitant]
     Active Substance: HYDROCHLOROTHIAZIDE
     Indication: HYPERTENSION
     Dosage: 1 DF, QD
     Route: 048
  8. SANDOSTATIN LAR DEPOT [Suspect]
     Active Substance: OCTREOTIDE ACETATE
     Indication: ACROMEGALY
     Dosage: 30 MG, 1 AMPOULE, MONTHLY/EVERY 28 DAYS
     Route: 030
     Dates: start: 2011
  9. ASPIRIN. [Suspect]
     Active Substance: ASPIRIN
     Indication: PRODUCT USED FOR UNKNOWN INDICATION
     Route: 065
  10. NIFEDIPINE. [Concomitant]
     Active Substance: NIFEDIPINE
     Indication: HYPERTENSION
     Dosage: 2 DF, QD
     Route: 048

REACTIONS (33)
  - Chromaturia [Unknown]
  - Injection site pain [Unknown]
  - Injection site mass [Recovered/Resolved]
  - Fluid retention [Recovered/Resolved]
  - Nervousness [Unknown]
  - Blood pressure abnormal [Unknown]
  - Pain in extremity [Recovering/Resolving]
  - Fluid intake reduced [Unknown]
  - Blood cholesterol increased [Unknown]
  - Hypoglycaemia [Unknown]
  - Fear of falling [Unknown]
  - Peripheral swelling [Recovered/Resolved]
  - Urine potassium abnormal [Unknown]
  - Thyroid neoplasm [Unknown]
  - Syncope [Recovered/Resolved]
  - Suffocation feeling [Recovered/Resolved]
  - Gait disturbance [Recovering/Resolving]
  - Nasal congestion [Recovered/Resolved]
  - Dizziness [Unknown]
  - Choking [Unknown]
  - Somnolence [Recovered/Resolved]
  - Visual impairment [Unknown]
  - Face injury [Unknown]
  - Asthenia [Recovering/Resolving]
  - Cough [Recovered/Resolved]
  - Weight fluctuation [Unknown]
  - Insomnia [Recovered/Resolved]
  - Fear of disease [Unknown]
  - Pollakiuria [Recovering/Resolving]
  - Fall [Unknown]
  - Dysstasia [Unknown]
  - Swelling [Unknown]
  - Dysuria [Unknown]

NARRATIVE: CASE EVENT DATE: 2013
